FAERS Safety Report 8394000-7 (Version None)
Quarter: 2012Q2

REPORT INFORMATION
  Report Type: 
  Country: None (occurrence: None)
  Receive Date: 20120523
  Receipt Date: 20120514
  Transmission Date: 20120825
  Serious: Yes (Other)
  Sender: FDA-Public Use
  Company Number: 2012000119

PATIENT
  Age: 60 Year
  Sex: Female
  Weight: 64 kg

DRUGS (8)
  1. ASPIRIN [Concomitant]
  2. VAGIFEM [Concomitant]
  3. ACEON [Suspect]
     Indication: HYPERTENSION
     Dosage: 2;4 MG, QD, ORAL
     Route: 048
     Dates: start: 20111001, end: 20120401
  4. ACEON [Suspect]
     Indication: HYPERTENSION
     Dosage: 2;4 MG, QD, ORAL
     Route: 048
     Dates: start: 20110401, end: 20111001
  5. PERINDOPRIL ERBUMINE [Suspect]
     Indication: HYPERTENSION
     Dosage: 8 MG, QD, ORAL
     Route: 048
     Dates: start: 20120411, end: 20120416
  6. BENDROFLUMETHIAZIDE (BENDROFLUMETHIAZIDE) [Concomitant]
  7. SIMVASTATIN [Concomitant]
  8. IBUPROFEN [Concomitant]

REACTIONS (2)
  - MUSCLE SPASMS [None]
  - ARTHRALGIA [None]
